FAERS Safety Report 14318044 (Version 1)
Quarter: 2017Q4

REPORT INFORMATION
  Report Type: Spontaneous
  Country: US (occurrence: US)
  Receive Date: 20171221
  Receipt Date: 20171221
  Transmission Date: 20180321
  Serious: Yes (Hospitalization)
  Sender: FDA-Public Use
  Company Number: None

PATIENT
  Age: 62 Year
  Sex: Female

DRUGS (21)
  1. ADCIRCA [Suspect]
     Active Substance: TADALAFIL
     Indication: PULMONARY HYPERTENSION
     Route: 048
     Dates: start: 20170206
  2. FLUTICASONE. [Concomitant]
     Active Substance: FLUTICASONE
  3. FUROSEMIDE. [Concomitant]
     Active Substance: FUROSEMIDE
  4. MAG OXIDE [Concomitant]
     Active Substance: MAGNESIUM OXIDE
  5. DARZALEX [Concomitant]
     Active Substance: DARATUMUMAB
  6. K-TAB [Concomitant]
     Active Substance: POTASSIUM CHLORIDE
  7. OPSUMIT [Concomitant]
     Active Substance: MACITENTAN
  8. SINGULIAR [Concomitant]
  9. REVLIMID [Concomitant]
     Active Substance: LENALIDOMIDE
  10. CALCIFEROL DROPS [Concomitant]
  11. OMEPRAZOLE. [Concomitant]
     Active Substance: OMEPRAZOLE
  12. ACYCLOVIR. [Concomitant]
     Active Substance: ACYCLOVIR
  13. ASPIRIN. [Concomitant]
     Active Substance: ASPIRIN
  14. VITAMIN C LOZANGE [Concomitant]
  15. LEVETIRACETA [Concomitant]
  16. LOSARTAN. [Concomitant]
     Active Substance: LOSARTAN
  17. MULTIVITAMIN [Concomitant]
     Active Substance: VITAMINS
  18. SOOLANTRA [Concomitant]
     Active Substance: IVERMECTIN
  19. VITAMIN B12 [Concomitant]
     Active Substance: CYANOCOBALAMIN
  20. AFRIN [Concomitant]
     Active Substance: OXYMETAZOLINE
  21. LORAZEPAM. [Concomitant]
     Active Substance: LORAZEPAM

REACTIONS (2)
  - Stem cell transplant [None]
  - Hospitalisation [None]

NARRATIVE: CASE EVENT DATE: 20171107
